FAERS Safety Report 24433999 (Version 1)
Quarter: 2024Q4

REPORT INFORMATION
  Report Type: Spontaneous
  Country: PL (occurrence: PL)
  Receive Date: 20241014
  Receipt Date: 20241014
  Transmission Date: 20250115
  Serious: Yes (Hospitalization, Other)
  Sender: INCYTE
  Company Number: PL-002147023-NVSC2024PL197909

PATIENT

DRUGS (4)
  1. RUXOLITINIB [Suspect]
     Active Substance: RUXOLITINIB
     Indication: Product used for unknown indication
     Dosage: UNK, 2X5MG
     Route: 065
  2. RUXOLITINIB [Suspect]
     Active Substance: RUXOLITINIB
     Dosage: UNK, 2X10MG
     Route: 065
  3. CYCLOSPORINE [Suspect]
     Active Substance: CYCLOSPORINE
     Indication: Product used for unknown indication
     Dosage: UNK
     Route: 065
  4. ELTROMBOPAG OLAMINE [Suspect]
     Active Substance: ELTROMBOPAG OLAMINE
     Indication: Product used for unknown indication
     Route: 065

REACTIONS (29)
  - Rash maculo-papular [Unknown]
  - Hypertension [Unknown]
  - Skin exfoliation [Unknown]
  - Abdominal pain [Unknown]
  - Pyrexia [Unknown]
  - Pain in extremity [Unknown]
  - Decreased appetite [Unknown]
  - Decreased appetite [Recovering/Resolving]
  - Mucosal prolapse syndrome [Unknown]
  - Pancytopenia [Unknown]
  - Red blood cell count [Unknown]
  - Graft versus host disease [Unknown]
  - Liver function test abnormal [Unknown]
  - Oesophagitis [Recovering/Resolving]
  - Thrombocytopenia [Unknown]
  - Superficial inflammatory dermatosis [Recovering/Resolving]
  - Abnormal loss of weight [Recovering/Resolving]
  - Infection [Unknown]
  - Mucosal inflammation [Unknown]
  - Hypoalbuminaemia [Unknown]
  - Hypoproteinaemia [Unknown]
  - Laboratory test abnormal [Unknown]
  - Ascites [Unknown]
  - Intestinal villi atrophy [Unknown]
  - Neutropenia [Unknown]
  - Erythropoiesis abnormal [Unknown]
  - Rash erythematous [Recovering/Resolving]
  - Skin lesion [Unknown]
  - Mouth ulceration [Unknown]
